FAERS Safety Report 10180469 (Version 1)
Quarter: 2014Q2

REPORT INFORMATION
  Report Type: Spontaneous
  Country: US (occurrence: US)
  Receive Date: 20140519
  Receipt Date: 20140519
  Transmission Date: 20141212
  Serious: No
  Sender: FDA-Public Use
  Company Number: US-AMGEN INC.-USASP2014001393

PATIENT
  Age: 74 Year
  Sex: Female

DRUGS (9)
  1. PROLIA [Suspect]
     Indication: OSTEOPOROSIS POSTMENOPAUSAL
     Dosage: UNK
     Route: 065
  2. ALEVE [Concomitant]
     Dosage: UNK
     Route: 065
  3. METHOTREXATE [Concomitant]
     Dosage: UNK
     Route: 065
  4. ETODOLAC [Concomitant]
     Dosage: UNK
     Route: 065
  5. METOPROLOL SUCCINATE [Concomitant]
     Dosage: UNK
     Route: 065
  6. PRAVASTATIN [Concomitant]
     Dosage: UNK
     Route: 065
  7. FOLIC ACID [Concomitant]
     Dosage: UNK
     Route: 065
  8. VITAMIN C                          /00008001/ [Concomitant]
     Dosage: 500 MG, UNK
     Route: 065
  9. VITAMIN D3 [Concomitant]
     Dosage: 2000 IU, UNK
     Route: 065

REACTIONS (7)
  - Nail discolouration [Unknown]
  - Arthritis [Unknown]
  - Chondropathy [Unknown]
  - Onychoclasis [Unknown]
  - Mobility decreased [Unknown]
  - Arthropathy [Unknown]
  - Arthralgia [Unknown]
